FAERS Safety Report 11912058 (Version 1)
Quarter: 2016Q1

REPORT INFORMATION
  Report Type: Report from Study
  Country: AU (occurrence: AU)
  Receive Date: 20160112
  Receipt Date: 20160112
  Transmission Date: 20160526
  Serious: Yes (Death)
  Sender: FDA-Public Use
  Company Number: AU-MYLANLABS-2016M1001391

PATIENT

DRUGS (2)
  1. CARBOPLATIN. [Concomitant]
     Active Substance: CARBOPLATIN
     Indication: NON-SMALL CELL LUNG CANCER METASTATIC
     Dosage: AUC 5 DAY 1, EVERY 21 DAYS
     Route: 065
  2. GEMCITABINE [Suspect]
     Active Substance: GEMCITABINE\GEMCITABINE HYDROCHLORIDE
     Indication: NON-SMALL CELL LUNG CANCER METASTATIC
     Dosage: 1 G/M2 ON DAY 1 AND 8, EVERY 21 DAYS
     Route: 065

REACTIONS (2)
  - Pneumocystis jirovecii pneumonia [Fatal]
  - Respiratory failure [Fatal]
